FAERS Safety Report 12142349 (Version 2)
Quarter: 2016Q1

REPORT INFORMATION
  Report Type: Spontaneous
  Country: JP (occurrence: JP)
  Receive Date: 20160303
  Receipt Date: 20160323
  Transmission Date: 20160526
  Serious: Yes (Death, Other)
  Sender: FDA-Public Use
  Company Number: JP-CELGENE-JPN-2016030171

PATIENT
  Age: 73 Year
  Sex: Female
  Weight: 40 kg

DRUGS (9)
  1. PLETAAL [Concomitant]
     Active Substance: CILOSTAZOL
     Indication: ARTERIAL OCCLUSIVE DISEASE
     Route: 048
     Dates: start: 20130620, end: 20130628
  2. ABRAXANE [Suspect]
     Active Substance: PACLITAXEL
     Indication: LUNG CANCER METASTATIC
     Dosage: 133 MILLIGRAM
     Route: 041
     Dates: start: 20130620, end: 20130620
  3. DIOVAN [Concomitant]
     Active Substance: VALSARTAN
     Indication: HYPERTENSION
     Route: 048
     Dates: start: 20130622, end: 20130628
  4. CALBLOCK [Concomitant]
     Active Substance: AZELNIDIPINE
     Indication: HYPERTENSION
     Route: 048
     Dates: start: 20130622, end: 20130628
  5. INSULIN [Concomitant]
     Active Substance: INSULIN NOS
     Indication: DIABETES MELLITUS
     Route: 058
     Dates: start: 20130621
  6. KINEDAK [Concomitant]
     Active Substance: EPALRESTAT
     Indication: DIABETIC NEUROPATHY
     Dosage: 419 MILLIGRAM
     Route: 048
     Dates: start: 20130622, end: 20130628
  7. CARBOPLATIN. [Suspect]
     Active Substance: CARBOPLATIN
     Indication: LUNG CANCER METASTATIC
     Dosage: AUC 6
     Route: 041
     Dates: start: 20130620, end: 20130620
  8. DORNER [Concomitant]
     Active Substance: BERAPROST SODIUM
     Indication: ARTERIAL OCCLUSIVE DISEASE
     Route: 048
     Dates: start: 20130622, end: 20130628
  9. GLUCOBAY [Concomitant]
     Active Substance: ACARBOSE
     Indication: DIABETES MELLITUS
     Route: 048
     Dates: start: 20130622, end: 20130628

REACTIONS (5)
  - Pneumonia [Fatal]
  - Respiratory failure [Fatal]
  - Febrile neutropenia [Fatal]
  - Pulmonary oedema [Fatal]
  - Sepsis [Fatal]

NARRATIVE: CASE EVENT DATE: 20130625
